FAERS Safety Report 19697108 (Version 3)
Quarter: 2021Q4

REPORT INFORMATION
  Report Type: Report from Study
  Country: BE (occurrence: BE)
  Receive Date: 20210813
  Receipt Date: 20211004
  Transmission Date: 20220303
  Serious: Yes (Hospitalization, Other)
  Sender: FDA-Public Use
  Company Number: BE-ROCHE-2648255

PATIENT
  Age: 78 Year
  Sex: Male
  Weight: 66 kg

DRUGS (54)
  1. CARBOPLATIN [Suspect]
     Active Substance: CARBOPLATIN
     Indication: Small cell lung cancer extensive stage
     Dosage: 400 MILLIGRAM
     Route: 065
     Dates: start: 20200622
  2. ETOPOSIDE [Suspect]
     Active Substance: ETOPOSIDE
     Indication: Small cell lung cancer extensive stage
     Dosage: 145 MILLIGRAM
     Route: 065
     Dates: start: 20200622
  3. ATEZOLIZUMAB [Suspect]
     Active Substance: ATEZOLIZUMAB
     Indication: Small cell lung cancer extensive stage
     Dosage: DOSES ON 13/JUL,03/AUG,24/AUG,25/AUG,12/OCT,02/NOV,23/NOV,14/SEP,14/DEC/2020 AND 04/JAN/2021
     Route: 042
     Dates: start: 20200622
  4. ATEZOLIZUMAB [Suspect]
     Active Substance: ATEZOLIZUMAB
     Dosage: UNK
  5. ATEZOLIZUMAB [Suspect]
     Active Substance: ATEZOLIZUMAB
     Dosage: 1200 MILLIGRAM, Q3W
     Route: 042
  6. ATEZOLIZUMAB [Suspect]
     Active Substance: ATEZOLIZUMAB
     Dosage: UNK
  7. CALCIUM CARBONATE\CHOLECALCIFEROL [Concomitant]
     Active Substance: CALCIUM CARBONATE\CHOLECALCIFEROL
     Dosage: UNK
     Dates: start: 20201009, end: 20201012
  8. MEDROL [Concomitant]
     Active Substance: METHYLPREDNISOLONE
     Dosage: QD
     Dates: start: 20200625
  9. ALIZAPRIDE [Concomitant]
     Active Substance: ALIZAPRIDE
     Dosage: 50 MILLIGRAM
     Dates: start: 20200714, end: 20200715
  10. ALIZAPRIDE [Concomitant]
     Active Substance: ALIZAPRIDE
     Dosage: 50 MILLIGRAM
     Dates: start: 20200825, end: 20200826
  11. ALIZAPRIDE [Concomitant]
     Active Substance: ALIZAPRIDE
     Dosage: 50 MILLIGRAM
     Dates: start: 20200623, end: 20200624
  12. ALIZAPRIDE [Concomitant]
     Active Substance: ALIZAPRIDE
     Dosage: 50 MILLIGRAM
     Dates: start: 20200804, end: 20200805
  13. ALIZAPRIDE [Concomitant]
     Active Substance: ALIZAPRIDE
     Dosage: QD
     Dates: start: 20201012, end: 20201012
  14. TINZAPARIN SODIUM [Concomitant]
     Active Substance: TINZAPARIN SODIUM
     Indication: Prophylaxis
     Dosage: QD
     Dates: start: 20200628
  15. PIPERACILLIN AND TAZOBACTAM [Concomitant]
     Active Substance: PIPERACILLIN SODIUM\TAZOBACTAM SODIUM
     Dosage: UNK UNK, QD
     Dates: start: 20201005, end: 20201008
  16. PIPERACILLIN AND TAZOBACTAM [Concomitant]
     Active Substance: PIPERACILLIN SODIUM\TAZOBACTAM SODIUM
     Dosage: UNK
     Dates: start: 20201130, end: 20201207
  17. MOXIFLOXACIN [Concomitant]
     Active Substance: MOXIFLOXACIN
     Dosage: UNK, QD
     Dates: start: 20201008, end: 20201018
  18. LACTULOSE [Concomitant]
     Active Substance: LACTULOSE
     Dosage: UNK
     Dates: start: 20200622, end: 20210103
  19. FOLIC ACID [Concomitant]
     Active Substance: FOLIC ACID
     Dosage: UNK UNK, QD
     Dates: start: 20200618, end: 20200624
  20. ENOXAPARIN [Concomitant]
     Active Substance: ENOXAPARIN
     Dosage: UNK, BID
     Dates: start: 20200616, end: 20200627
  21. ENOXAPARIN [Concomitant]
     Active Substance: ENOXAPARIN
     Dosage: UNK, BID
     Dates: start: 20210113
  22. LORMETAZEPAM [Concomitant]
     Active Substance: LORMETAZEPAM
     Dosage: UNK, QD
     Dates: start: 20200620, end: 20200622
  23. ATORVASTATIN [Concomitant]
     Active Substance: ATORVASTATIN
     Dosage: UNK UNK, QD
     Dates: start: 2014
  24. FENOTEROL HYDROBROMIDE [Concomitant]
     Active Substance: FENOTEROL HYDROBROMIDE
     Dosage: UNK UNK, QID
     Dates: start: 20200616, end: 20200627
  25. AKYNZEO [Concomitant]
     Active Substance: NETUPITANT\PALONOSETRON HYDROCHLORIDE
     Dosage: 300.5 MILLIGRAM
     Dates: start: 20200803, end: 20200803
  26. AKYNZEO [Concomitant]
     Active Substance: NETUPITANT\PALONOSETRON HYDROCHLORIDE
     Dosage: 300.5 MILLIGRAM
     Dates: start: 20200622, end: 20200622
  27. AKYNZEO [Concomitant]
     Active Substance: NETUPITANT\PALONOSETRON HYDROCHLORIDE
     Dosage: 300.5 MILLIGRAM
     Dates: start: 20200713, end: 20200713
  28. AKYNZEO [Concomitant]
     Active Substance: NETUPITANT\PALONOSETRON HYDROCHLORIDE
     Dosage: 300.5 MILLIGRAM
     Dates: start: 20200824, end: 20200824
  29. ALLOPURINOL [Concomitant]
     Active Substance: ALLOPURINOL
     Dosage: UNK, QD
     Dates: start: 20200617
  30. LIPEGFILGRASTIM [Concomitant]
     Active Substance: LIPEGFILGRASTIM
     Indication: Prophylaxis
     Dosage: UNK, MONTHLY
     Dates: start: 20200625, end: 20200827
  31. METHYLPREDNISOLONE [Concomitant]
     Active Substance: METHYLPREDNISOLONE
     Indication: Prophylaxis
     Dosage: 80 MILLIGRAM
     Dates: start: 20200622, end: 20200622
  32. METHYLPREDNISOLONE [Concomitant]
     Active Substance: METHYLPREDNISOLONE
     Dosage: 80 MILLIGRAM
     Dates: start: 20200803, end: 20200803
  33. METHYLPREDNISOLONE [Concomitant]
     Active Substance: METHYLPREDNISOLONE
     Dosage: 80 MILLIGRAM, BID
     Dates: start: 20200616, end: 20200623
  34. METHYLPREDNISOLONE [Concomitant]
     Active Substance: METHYLPREDNISOLONE
     Dosage: 80 MILLIGRAM
     Dates: start: 20200824, end: 20200824
  35. METHYLPREDNISOLONE [Concomitant]
     Active Substance: METHYLPREDNISOLONE
     Dosage: 80 MILLIGRAM, BID
     Dates: start: 20200623, end: 20200624
  36. METHYLPREDNISOLONE [Concomitant]
     Active Substance: METHYLPREDNISOLONE
     Dosage: UNK, QD
     Dates: start: 20210111, end: 20210111
  37. METHYLPREDNISOLONE [Concomitant]
     Active Substance: METHYLPREDNISOLONE
     Dosage: UNK, QD
     Dates: start: 20201201
  38. RASBURICASE [Concomitant]
     Active Substance: RASBURICASE
     Indication: Prophylaxis
     Dosage: UNK, QD
     Dates: start: 20200623, end: 20200624
  39. LORAZEPAM [Concomitant]
     Active Substance: LORAZEPAM
     Dosage: UNK, QD
     Dates: start: 20200621
  40. CEFTRIAXONE [Concomitant]
     Active Substance: CEFTRIAXONE
     Dosage: UNK
     Dates: start: 20201008, end: 20201013
  41. MAGNESIUM GLUCONATE [Concomitant]
     Active Substance: MAGNESIUM GLUCONATE
     Indication: Prophylaxis
     Dosage: UNK UNK, MONTHLY
     Dates: start: 20200623, end: 20200903
  42. LATANOPROST [Concomitant]
     Active Substance: LATANOPROST
     Dosage: UNK, QD
  43. PANTOPRAZOLE [Concomitant]
     Active Substance: PANTOPRAZOLE
     Indication: Prophylaxis
     Dosage: UNK, QD
     Dates: start: 20200625
  44. KALIUMCHLORIDE [Concomitant]
     Dosage: UNK, QD
     Dates: start: 20201130, end: 20201207
  45. MORPHINE HYDROCHLORIDE [Concomitant]
     Active Substance: MORPHINE HYDROCHLORIDE
     Dosage: UNK, QD
     Dates: start: 20210111, end: 20210111
  46. MORPHINE HYDROCHLORIDE [Concomitant]
     Active Substance: MORPHINE HYDROCHLORIDE
     Dosage: UNK, QD
     Dates: start: 20210112, end: 20210112
  47. MORPHINE HYDROCHLORIDE [Concomitant]
     Active Substance: MORPHINE HYDROCHLORIDE
     Dosage: UNK, QD
     Dates: start: 20210114
  48. MIDAZOLAM [Concomitant]
     Active Substance: MIDAZOLAM
     Dosage: UNK, QD
     Dates: start: 20210114
  49. BUDESONIDE [Concomitant]
     Active Substance: BUDESONIDE
     Dosage: UNK, QD
     Dates: start: 20210112, end: 20210112
  50. ESOMEPRAZOLE. [Concomitant]
     Active Substance: ESOMEPRAZOLE MAGNESIUM
     Dosage: UNK, QD
     Dates: start: 20210112
  51. HYDROCORTISONE [Concomitant]
     Active Substance: HYDROCORTISONE
     Dosage: UNK
     Dates: start: 20210112
  52. GLYCOPYRROLATE [Concomitant]
     Active Substance: GLYCOPYRROLATE
     Dosage: UNK
     Dates: start: 20210114
  53. ACETAMINOPHEN [Concomitant]
     Active Substance: ACETAMINOPHEN
     Dosage: UNK
     Dates: start: 20201205
  54. TRAMADOL [Concomitant]
     Active Substance: TRAMADOL
     Dosage: UNK

REACTIONS (12)
  - Superior vena cava syndrome [Recovering/Resolving]
  - Neoplasm progression [Recovering/Resolving]
  - Device related thrombosis [Recovered/Resolved]
  - Cardiogenic shock [Recovering/Resolving]
  - Atrial fibrillation [Recovering/Resolving]
  - Oedema peripheral [Recovered/Resolved]
  - Decreased appetite [Recovering/Resolving]
  - Weight decreased [Recovered/Resolved]
  - Epistaxis [Recovered/Resolved]
  - Paraesthesia [Recovered/Resolved]
  - Constipation [Recovering/Resolving]
  - Alopecia [Recovered/Resolved]

NARRATIVE: CASE EVENT DATE: 20200623
